FAERS Safety Report 6386251-8 (Version None)
Quarter: 2009Q4

REPORT INFORMATION
  Report Type: 
  Country: None (occurrence: None)
  Receive Date: 20091002
  Receipt Date: 20090921
  Transmission Date: 20100525
  Serious: Yes (Hospitalization)
  Sender: FDA-Public Use
  Company Number: KR-PFIZER INC-2009184422

PATIENT
  Age: 57 Year

DRUGS (3)
  1. SUNITINIB MALATE [Suspect]
     Indication: HEPATIC NEOPLASM MALIGNANT
     Dosage: UNK
     Route: 048
     Dates: start: 20090217
  2. VITAMIN B COMPLEX CAP [Concomitant]
     Indication: VITAMIN SUPPLEMENTATION
     Dates: start: 20080130
  3. CLEVUDINE [Concomitant]
     Indication: HEPATITIS B
     Dates: start: 20090227

REACTIONS (2)
  - CONSTIPATION [None]
  - HEPATIC ENCEPHALOPATHY [None]
